FAERS Safety Report 9135374 (Version 1)
Quarter: 2013Q1

REPORT INFORMATION
  Report Type: Spontaneous
  Country: US (occurrence: US)
  Receive Date: 20130304
  Receipt Date: 20130304
  Transmission Date: 20140127
  Serious: No
  Sender: FDA-Public Use
  Company Number: US-ENDO PHARMACEUTICALS INC.-ENDC20110127

PATIENT
  Sex: Female
  Weight: 82.63 kg

DRUGS (2)
  1. ENDOCET [Suspect]
     Indication: RENAL PAIN
     Dosage: 20/650 MG
     Route: 048
  2. ENDOCET [Suspect]
     Indication: ABDOMINAL PAIN UPPER

REACTIONS (6)
  - Mood swings [Unknown]
  - Contusion [Unknown]
  - Nightmare [Unknown]
  - Sleep talking [Unknown]
  - Abdominal distension [Unknown]
  - Vomiting [Unknown]
